FAERS Safety Report 26090607 (Version 1)
Quarter: 2025Q4

REPORT INFORMATION
  Report Type: Spontaneous
  Country: CN (occurrence: CN)
  Receive Date: 20251126
  Receipt Date: 20251126
  Transmission Date: 20260118
  Serious: Yes (Hospitalization, Other)
  Sender: SANOFI AVENTIS
  Company Number: CN-SA-2025SA347831

PATIENT
  Age: 68 Year
  Sex: Female

DRUGS (4)
  1. HYDROCHLOROTHIAZIDE\IRBESARTAN [Suspect]
     Active Substance: HYDROCHLOROTHIAZIDE\IRBESARTAN
     Indication: Blood pressure increased
     Dosage: 1.000DF QD
     Route: 048
     Dates: start: 20251001, end: 20251103
  2. LORAZEPAM [Suspect]
     Active Substance: LORAZEPAM
     Indication: Anxiety
     Dosage: 2.000MG BID
     Route: 048
     Dates: start: 20251001, end: 20251103
  3. ESCITALOPRAM OXALATE [Suspect]
     Active Substance: ESCITALOPRAM OXALATE
     Indication: Depression
     Dosage: 10.000MG QD
     Route: 048
     Dates: start: 20251001, end: 20251103
  4. ALPRAZOLAM [Suspect]
     Active Substance: ALPRAZOLAM
     Indication: Hypnotherapy
     Dosage: 1.000DF QD
     Route: 048
     Dates: start: 20251001, end: 20251103

REACTIONS (5)
  - Transient ischaemic attack [Unknown]
  - Amaurosis [Recovered/Resolved]
  - Muscular weakness [Recovered/Resolved]
  - Nausea [Unknown]
  - Vomiting [Unknown]

NARRATIVE: CASE EVENT DATE: 20251103
